FAERS Safety Report 25361534 (Version 1)
Quarter: 2025Q2

REPORT INFORMATION
  Report Type: Spontaneous
  Country: US (occurrence: US)
  Receive Date: 20250527
  Receipt Date: 20250527
  Transmission Date: 20250716
  Serious: Yes (Death, Other)
  Sender: AMGEN
  Company Number: US-AMGEN-USASP2025101322

PATIENT

DRUGS (2)
  1. ARANESP [Suspect]
     Active Substance: DARBEPOETIN ALFA
     Indication: Product used for unknown indication
     Dosage: 10 MICROGRAM/KILOGRAM, QWK
     Route: 065
  2. IRON [Concomitant]
     Active Substance: IRON
     Dosage: UNK, QWK

REACTIONS (8)
  - Death [Fatal]
  - Bronchopulmonary dysplasia [Unknown]
  - Retinopathy of prematurity [Unknown]
  - Intraventricular haemorrhage [Unknown]
  - Necrotising colitis [Unknown]
  - Sepsis neonatal [Unknown]
  - Cerebral palsy [Unknown]
  - Neurodevelopmental disorder [Unknown]
